FAERS Safety Report 9970233 (Version 1)
Quarter: 2014Q1

REPORT INFORMATION
  Report Type: Spontaneous
  Country: US (occurrence: US)
  Receive Date: 20140306
  Receipt Date: 20140306
  Transmission Date: 20141002
  Serious: No
  Sender: FDA-Public Use
  Company Number: US-BAYER-2014-027521

PATIENT
  Age: 70 Year
  Sex: Female
  Weight: 58 kg

DRUGS (4)
  1. ALEVE CAPLET [Suspect]
     Indication: ANALGESIC THERAPY
     Dosage: 1 DF, OTHER FREQUENCY
     Route: 048
     Dates: start: 201312, end: 20140219
  2. ALEVE CAPLET [Suspect]
     Indication: ANALGESIC THERAPY
     Dosage: 1 DF, BID
  3. LISINOPRIL [Concomitant]
  4. LEVOTHYROXINE [Concomitant]

REACTIONS (7)
  - Joint swelling [Recovered/Resolved]
  - Pollakiuria [Recovered/Resolved]
  - Fluid retention [Recovered/Resolved]
  - Gait disturbance [Recovered/Resolved]
  - Product solubility abnormal [None]
  - Intentional drug misuse [None]
  - Incorrect drug administration duration [None]
